FAERS Safety Report 5230312-3 (Version None)
Quarter: 2007Q1

REPORT INFORMATION
  Report Type: 
  Country: None (occurrence: None)
  Receive Date: 20070206
  Receipt Date: 20070124
  Transmission Date: 20070707
  Serious: Yes (Life-Threatening, Other)
  Sender: FDA-Public Use
  Company Number: US-PFIZER INC-2007007314

PATIENT
  Sex: Female

DRUGS (1)
  1. ATGAM [Suspect]

REACTIONS (2)
  - APPARENT LIFE THREATENING EVENT [None]
  - DRUG SPECIFIC ANTIBODY PRESENT [None]
